FAERS Safety Report 4359803-4 (Version None)
Quarter: 2004Q2

REPORT INFORMATION
  Report Type: 
  Country: None (occurrence: None)
  Receive Date: 20040518
  Receipt Date: 20040505
  Transmission Date: 20050107
  Serious: Yes (Other)
  Sender: FDA-Public Use
  Company Number: CA-ROCHE-367050

PATIENT
  Age: 40 Year
  Sex: Female

DRUGS (13)
  1. INVIRASE [Suspect]
     Indication: DRUG USE FOR UNKNOWN INDICATION
     Route: 048
  2. NORVIR [Suspect]
     Indication: DRUG USE FOR UNKNOWN INDICATION
     Route: 048
  3. ZERIT [Suspect]
     Indication: DRUG USE FOR UNKNOWN INDICATION
     Route: 048
  4. WELLBUTRIN [Concomitant]
  5. ALDARA [Concomitant]
     Route: 061
  6. DIFLUCAN [Concomitant]
     Dosage: GIVEN DAILY.
     Route: 048
  7. DURAGESIC [Concomitant]
     Dosage: GIVEN EVERY OTHER DAY.
  8. IMOVANE [Concomitant]
  9. METHADONE HCL [Concomitant]
  10. PROZAC [Concomitant]
  11. PROCHLORPERAZINE [Concomitant]
  12. SURFAK [Concomitant]
  13. SYNACORT [Concomitant]

REACTIONS (7)
  - HEADACHE [None]
  - HEPATIC ENZYME INCREASED [None]
  - HEPATIC STEATOSIS [None]
  - HEPATOMEGALY [None]
  - LACTIC ACIDOSIS [None]
  - NAUSEA [None]
  - VOMITING [None]
